FAERS Safety Report 7919676-7 (Version None)
Quarter: 2011Q4

REPORT INFORMATION
  Report Type: 
  Country: None (occurrence: None)
  Receive Date: 20111115
  Receipt Date: 20111108
  Transmission Date: 20120403
  Serious: Yes (Death)
  Sender: FDA-Public Use
  Company Number: 2010003754

PATIENT
  Age: 69 Year
  Sex: Female

DRUGS (10)
  1. NEXIUM (ESOMEPRAZOLE HUMAN INJECTION, ISOPHANE) [Concomitant]
  2. LOVASTATIN (LOVASTATIN) TABLET [Concomitant]
  3. DILTIAZEM [Concomitant]
  4. ACTOS [Concomitant]
  5. LISINOPRIL [Concomitant]
  6. NOVOLIN N [Concomitant]
  7. COMBIGAN (BRIMONIDINE TARTRATE, TIMOLOL MALEATE) [Concomitant]
  8. FENTANYL [Concomitant]
  9. TARCEVA [Suspect]
     Indication: PANCREATIC CARCINOMA
     Dosage: 25 MG, 2 TABLETS DAILY, ORAL
     Route: 048
     Dates: start: 20100824
  10. PLAVIX [Concomitant]

REACTIONS (3)
  - INCORRECT DOSE ADMINISTERED [None]
  - CARDIOVASCULAR DISORDER [None]
  - DIARRHOEA [None]
